FAERS Safety Report 7632550-9 (Version None)
Quarter: 2011Q3

REPORT INFORMATION
  Report Type: 
  Country: None (occurrence: None)
  Receive Date: 20110725
  Receipt Date: 20101007
  Transmission Date: 20111222
  Serious: No
  Sender: FDA-Public Use
  Company Number: US-BRISTOL-MYERS SQUIBB COMPANY-15324106

PATIENT
  Age: 53 Year
  Sex: Female

DRUGS (2)
  1. COUMADIN [Suspect]
  2. LOVENOX [Suspect]
     Indication: THROMBOSIS
     Dates: start: 20100823

REACTIONS (2)
  - HEADACHE [None]
  - INTERNATIONAL NORMALISED RATIO DECREASED [None]
